FAERS Safety Report 5498302-3 (Version None)
Quarter: 2007Q4

REPORT INFORMATION
  Report Type: 
  Country: None (occurrence: None)
  Receive Date: 20071025
  Receipt Date: 20070427
  Transmission Date: 20080405
  Serious: No
  Sender: FDA-Public Use
  Company Number: A0649062A

PATIENT
  Age: 68 Year
  Sex: Female

DRUGS (8)
  1. ADVAIR DISKUS 100/50 [Suspect]
     Indication: CHRONIC OBSTRUCTIVE PULMONARY DISEASE
     Dosage: 1PUFF TWICE PER DAY
     Route: 055
     Dates: start: 20070301
  2. FORADIL [Suspect]
     Indication: CHRONIC OBSTRUCTIVE PULMONARY DISEASE
     Dosage: 12MCG TWICE PER DAY
     Route: 055
     Dates: end: 20070427
  3. SPIRIVA [Concomitant]
  4. TRIAMTERENE AND HYDROCHLOROTHIAZIDE [Concomitant]
  5. ALBUTEROL [Concomitant]
  6. CRESTOR [Concomitant]
  7. DILTIAZEM [Concomitant]
  8. LEVOTHYROXINE SODIUM [Concomitant]

REACTIONS (3)
  - DRUG INEFFECTIVE [None]
  - DYSPNOEA [None]
  - FEELING JITTERY [None]
